FAERS Safety Report 8588105 (Version 3)
Quarter: 2013Q4

REPORT INFORMATION
  Report Type: Spontaneous
  Country: US (occurrence: US)
  Receive Date: 20120531
  Receipt Date: 20131213
  Transmission Date: 20140711
  Serious: Yes (Hospitalization)
  Sender: FDA-Public Use
  Company Number: US-BAYER-2012-053199

PATIENT
  Age: 12 Year
  Sex: Female
  Weight: 45.35 kg

DRUGS (4)
  1. YAZ [Suspect]
     Indication: MENSTRUATION IRREGULAR
     Dosage: UNK
     Dates: start: 20090204, end: 201001
  2. FLUOXETINE [Concomitant]
     Dosage: 20 MG, UNK
  3. NAPROXEN [Concomitant]
     Dosage: 375 MG, UNK
  4. OMEPRAZOLE [Concomitant]
     Dosage: 40 MG, UNK

REACTIONS (5)
  - Cholelithiasis [None]
  - Injury [None]
  - Abdominal pain [None]
  - Pain [None]
  - Depression [None]
